FAERS Safety Report 5426270-9 (Version None)
Quarter: 2007Q3

REPORT INFORMATION
  Report Type: 
  Country: None (occurrence: None)
  Receive Date: 20070827
  Receipt Date: 20070822
  Transmission Date: 20080115
  Serious: Yes (Other)
  Sender: FDA-Public Use
  Company Number: A0673252A

PATIENT
  Age: 70 Year
  Sex: Female

DRUGS (6)
  1. ALLI [Suspect]
     Route: 048
  2. LASIX [Concomitant]
  3. NORVASC [Concomitant]
  4. DIOVAN [Concomitant]
  5. POTASSIUM CHLORIDE [Concomitant]
  6. VYTORIN [Concomitant]

REACTIONS (6)
  - ABDOMINAL PAIN UPPER [None]
  - CHILLS [None]
  - FEAR [None]
  - PYREXIA [None]
  - RECTAL DISCHARGE [None]
  - RECTAL HAEMORRHAGE [None]
